FAERS Safety Report 6573597-3 (Version None)
Quarter: 2010Q1

REPORT INFORMATION
  Report Type: 
  Country: None (occurrence: None)
  Receive Date: 20100208
  Receipt Date: 20100129
  Transmission Date: 20100710
  Serious: Yes (Hospitalization)
  Sender: FDA-Public Use
  Company Number: JP-ROCHE-675805

PATIENT
  Sex: Female
  Weight: 54 kg

DRUGS (9)
  1. CELLCEPT [Suspect]
     Route: 048
     Dates: start: 20090714
  2. IMURAN [Concomitant]
     Route: 048
     Dates: start: 19830722, end: 20090713
  3. BREDININ [Concomitant]
     Route: 048
     Dates: start: 19830722, end: 20090713
  4. ONEALFA [Concomitant]
     Route: 048
  5. MEDROL [Concomitant]
     Route: 048
  6. GASLON N [Concomitant]
     Dosage: FORM: PERORAL AGENT. DRUG NAME: GASLON.
     Route: 048
  7. LIPITOR [Concomitant]
     Route: 048
  8. BONALON [Concomitant]
     Route: 048
  9. OMEPRAL [Concomitant]
     Dosage: FORM: ENTERIC COATING DRUG
     Route: 048

REACTIONS (1)
  - EPSTEIN-BARR VIRUS INFECTION [None]
